FAERS Safety Report 10713175 (Version 3)
Quarter: 2019Q3

REPORT INFORMATION
  Report Type: Report from Study
  Country: US (occurrence: US)
  Receive Date: 20150115
  Receipt Date: 20190926
  Transmission Date: 20191004
  Serious: Yes (Hospitalization, Other)
  Sender: FDA-Public Use
  Company Number: US-SA-2015SA003358

PATIENT
  Age: 69 Year
  Sex: Male

DRUGS (3)
  1. IMIGLUCERASE [Suspect]
     Active Substance: IMIGLUCERASE
     Dosage: Q3 ,3600
     Route: 042
     Dates: start: 19990731
  2. IMIGLUCERASE [Suspect]
     Active Substance: IMIGLUCERASE
     Dosage: 3600 DF, Q3W
     Route: 042
     Dates: start: 1991
  3. IMIGLUCERASE [Suspect]
     Active Substance: IMIGLUCERASE
     Indication: GAUCHER^S DISEASE
     Dosage: 3600 DF
     Route: 042
     Dates: start: 20060920

REACTIONS (5)
  - Hip surgery [Not Recovered/Not Resolved]
  - Dermatitis herpetiformis [Recovered/Resolved]
  - Arthropathy [Recovered/Resolved]
  - Coronary artery bypass [Unknown]
  - Hip arthroplasty [Not Recovered/Not Resolved]

NARRATIVE: CASE EVENT DATE: 1994
